FAERS Safety Report 9437805 (Version 2)
Quarter: 2014Q1

REPORT INFORMATION
  Report Type: Spontaneous
  Country: US (occurrence: US)
  Receive Date: 20130802
  Receipt Date: 20140102
  Transmission Date: 20141002
  Serious: Yes (Death, Hospitalization)
  Sender: FDA-Public Use
  Company Number: US-B.I. PHARMACEUTICALS,INC./RIDGEFIELD-2013-BI-23018BP

PATIENT
  Sex: Male
  Weight: 88 kg

DRUGS (13)
  1. PRADAXA [Suspect]
     Dates: start: 20120601, end: 20120609
  2. KLONOPIN [Concomitant]
  3. BENTYL [Concomitant]
  4. NORPACE [Concomitant]
  5. PERCOCET [Concomitant]
  6. LASIX [Concomitant]
  7. CORGARD [Concomitant]
  8. PRILOSEC [Concomitant]
  9. K-DUR [Concomitant]
  10. PRAVACHOL [Concomitant]
  11. TESTOSTERONE [Concomitant]
  12. TRAZODONE [Concomitant]
  13. ZESTRIL [Concomitant]

REACTIONS (9)
  - Gastrointestinal haemorrhage [Fatal]
  - Respiratory arrest [Fatal]
  - Cardiogenic shock [Fatal]
  - Hypoxic-ischaemic encephalopathy [Fatal]
  - Pulmonary oedema [Fatal]
  - Coagulopathy [Unknown]
  - Disseminated intravascular coagulation [Unknown]
  - Sputum abnormal [Unknown]
  - Epistaxis [Unknown]
